FAERS Safety Report 21392099 (Version 1)
Quarter: 2022Q3

REPORT INFORMATION
  Report Type: Spontaneous
  Country: ES (occurrence: ES)
  Receive Date: 20220929
  Receipt Date: 20220929
  Transmission Date: 20221027
  Serious: Yes (Other)
  Sender: FDA-Public Use
  Company Number: None

PATIENT
  Age: 62 Year
  Sex: Female

DRUGS (4)
  1. IMRALDI [Suspect]
     Active Substance: ADALIMUMAB
     Indication: Rheumatic disorder
     Dosage: SOLUTION FOR INJECTION IN PRE-FILLED PEN, 2 PRE-FILLED PENS OF 0.8 ML
     Route: 058
     Dates: start: 20220810, end: 20220829
  2. OMEPRAZOLE [Concomitant]
     Active Substance: OMEPRAZOLE
     Indication: Product used for unknown indication
     Dosage: GASTRO-RESISTANT CAPSULES, HARD EFG, 56 CAPSULES
     Route: 048
     Dates: start: 20211005
  3. CALCIFEDIOL [Concomitant]
     Active Substance: CALCIFEDIOL
     Indication: Product used for unknown indication
     Dosage: 0.266 MG ORAL SOLUTION, 10 DRINKABLE AMPOULES OF 1.5 ML
     Route: 048
     Dates: start: 20211005
  4. CRESTOR [Concomitant]
     Active Substance: ROSUVASTATIN CALCIUM
     Indication: Product used for unknown indication
     Dosage: 10 MG FILM-COATED TABLETS, 28 TABLETS
     Route: 048
     Dates: start: 20211005

REACTIONS (2)
  - Urticaria [Recovering/Resolving]
  - Product use in unapproved indication [Unknown]

NARRATIVE: CASE EVENT DATE: 20220821
